FAERS Safety Report 7995277-X (Version None)
Quarter: 2011Q4

REPORT INFORMATION
  Report Type: 
  Country: None (occurrence: None)
  Receive Date: 20111220
  Receipt Date: 20111208
  Transmission Date: 20120403
  Serious: Yes (Hospitalization)
  Sender: FDA-Public Use
  Company Number: FR-JNJFOC-20111207694

PATIENT
  Age: 65 Year
  Sex: Female

DRUGS (9)
  1. ACETAMINOPHEN [Suspect]
     Indication: WOUND
     Route: 048
     Dates: start: 20110806
  2. PIPERACILLIN AND TAZOBACTAM [Suspect]
     Indication: SEPSIS
     Route: 042
     Dates: start: 20110811, end: 20110820
  3. CLINDAMYCIN HCL [Suspect]
     Indication: CELLULITIS
     Route: 065
     Dates: start: 20110811, end: 20110817
  4. CLINDAMYCIN HCL [Suspect]
     Indication: SEPSIS
     Route: 065
     Dates: start: 20110811, end: 20110817
  5. ZYVOX [Suspect]
     Indication: CELLULITIS
     Route: 065
     Dates: start: 20110811, end: 20110817
  6. OXAZEPAM [Suspect]
     Indication: PRODUCT USED FOR UNKNOWN INDICATION
     Route: 065
     Dates: start: 20110810
  7. TRAMADOL HCL [Suspect]
     Indication: PRODUCT USED FOR UNKNOWN INDICATION
     Route: 065
     Dates: start: 20110809
  8. ZYVOX [Suspect]
     Indication: SEPSIS
     Route: 065
     Dates: start: 20110811, end: 20110817
  9. PIPERACILLIN AND TAZOBACTAM [Suspect]
     Indication: CELLULITIS
     Route: 042
     Dates: start: 20110811, end: 20110820

REACTIONS (1)
  - ACUTE GENERALISED EXANTHEMATOUS PUSTULOSIS [None]
